FAERS Safety Report 16449751 (Version 1)
Quarter: 2019Q2

REPORT INFORMATION
  Report Type: Spontaneous
  Country: IE (occurrence: IE)
  Receive Date: 20190619
  Receipt Date: 20190619
  Transmission Date: 20190711
  Serious: Yes (Other)
  Sender: FDA-Public Use
  Company Number: IE-FRESENIUS KABI-FK201906722

PATIENT
  Age: 42 Year
  Sex: Male

DRUGS (4)
  1. PRALIDOXIME [Concomitant]
     Active Substance: PRALIDOXIME
     Indication: PRODUCT USED FOR UNKNOWN INDICATION
     Dosage: UNKNOWN
     Route: 065
  2. ATROPINE (MANUFACTURER UNKNOWN) [Suspect]
     Active Substance: ATROPINE
     Indication: BRADYCARDIA
     Dosage: 600 UG
     Route: 065
  3. ATROPINE (MANUFACTURER UNKNOWN) [Suspect]
     Active Substance: ATROPINE
     Dosage: 120 UG/H
     Route: 065
  4. DIAZEPAM. [Concomitant]
     Active Substance: DIAZEPAM
     Indication: PRODUCT USED FOR UNKNOWN INDICATION
     Dosage: UNKNOWN
     Route: 065

REACTIONS (1)
  - Anticholinergic syndrome [Recovered/Resolved]
